FAERS Safety Report 16481454 (Version 1)
Quarter: 2019Q2

REPORT INFORMATION
  Report Type: Spontaneous
  Country: LK (occurrence: LK)
  Receive Date: 20190627
  Receipt Date: 20190627
  Transmission Date: 20190711
  Serious: Yes (Life-Threatening, Hospitalization, Other)
  Sender: FDA-Public Use
  Company Number: LK-ALVOGEN-2019-ALVOGEN-100307

PATIENT
  Age: 7 Year
  Sex: Female

DRUGS (2)
  1. RIFAMPICIN [Concomitant]
     Active Substance: RIFAMPIN
     Indication: LEPROSY
  2. DAPSONE. [Suspect]
     Active Substance: DAPSONE
     Indication: LEPROSY

REACTIONS (2)
  - Sepsis [Recovered/Resolved]
  - Agranulocytosis [Recovered/Resolved]
